FAERS Safety Report 7688557-9 (Version None)
Quarter: 2011Q3

REPORT INFORMATION
  Report Type: 
  Country: None (occurrence: None)
  Receive Date: 20110817
  Receipt Date: 20110817
  Transmission Date: 20111222
  Serious: Yes (Life-Threatening)
  Sender: FDA-Public Use
  Company Number: None

PATIENT

DRUGS (1)
  1. BENADRYL [Suspect]
     Indication: FOOD ALLERGY

REACTIONS (1)
  - PRODUCT PACKAGING ISSUE [None]
